APPROVED DRUG PRODUCT: AUBAGIO
Active Ingredient: TERIFLUNOMIDE
Strength: 7MG
Dosage Form/Route: TABLET;ORAL
Application: N202992 | Product #001 | TE Code: AB
Applicant: SANOFI AVENTIS US LLC
Approved: Sep 12, 2012 | RLD: Yes | RS: No | Type: RX

PATENTS:
Patent 9186346 | Expires: Feb 4, 2034
Patent 6794410 | Expires: Sep 12, 2026
Patent 8802735 | Expires: Sep 14, 2030
Patent 8802735*PED | Expires: Mar 14, 2031
Patent 6794410*PED | Expires: Mar 12, 2027
Patent 9186346*PED | Expires: Aug 4, 2034